FAERS Safety Report 8962087 (Version 2)
Quarter: 2014Q2

REPORT INFORMATION
  Report Type: Report from Study
  Country: SE (occurrence: SE)
  Receive Date: 20121212
  Receipt Date: 20131018
  Transmission Date: 20141212
  Serious: Yes (Life-Threatening, Hospitalization)
  Sender: FDA-Public Use
  Company Number: SE-PFIZER INC-2012308253

PATIENT
  Age: 39 Year
  Sex: Female

DRUGS (44)
  1. METHYLPREDNISOLONE SODIUM SUCCINATE [Suspect]
     Indication: PROPHYLAXIS AGAINST TRANSPLANT REJECTION
     Dosage: 500 MG, 1X/DAY
     Route: 042
     Dates: start: 20030206, end: 20030209
  2. PREDNISOLONE [Suspect]
     Indication: PROPHYLAXIS AGAINST TRANSPLANT REJECTION
     Dosage: 2.5 MG, 1X/DAY
     Route: 048
     Dates: start: 20021205
  3. DACLIZUMAB [Suspect]
     Indication: PROPHYLAXIS AGAINST TRANSPLANT REJECTION
     Dosage: 120 MG, 1 IN 1 TOTAL
     Route: 042
     Dates: start: 20021204
  4. DACLIZUMAB [Suspect]
     Dosage: 60 MG, 1 IN 2 WEEKS
     Route: 042
     Dates: start: 20021218
  5. CICLOSPORIN [Suspect]
     Indication: PROPHYLAXIS AGAINST TRANSPLANT REJECTION
     Dosage: 75 MG (1 MG,75 IN 1 D)
     Route: 048
     Dates: start: 20021204, end: 20021205
  6. CICLOSPORIN [Suspect]
     Dosage: 126 MG (2 MG,63 IN 1 D)
     Route: 048
     Dates: start: 20021206
  7. CICLOSPORIN [Suspect]
     Dosage: 200 MG (2 MG,100 IN 1 D)
     Route: 048
     Dates: start: 20030214
  8. CICLOSPORIN [Suspect]
     Dosage: 150 MG, (2 MG, 75 IN 1 D)
     Route: 048
     Dates: start: 20030221, end: 20030424
  9. PREDNISOLONE [Suspect]
     Indication: PROPHYLAXIS AGAINST TRANSPLANT REJECTION
     Dosage: 100 MG, ONCE (100 MG,1 IN 1 TOTAL)
     Route: 042
     Dates: start: 20021204, end: 20021204
  10. MYCOPHENOLATE MOFETIL [Suspect]
     Indication: PROPHYLAXIS AGAINST TRANSPLANT REJECTION
     Dosage: 1 G, 1X/DAY
     Route: 048
     Dates: start: 20021204
  11. MYCOPHENOLATE MOFETIL [Suspect]
     Dosage: 1 G, 2X/DAY
     Route: 048
     Dates: start: 20021205
  12. MYCOPHENOLATE MOFETIL [Suspect]
     Dosage: 750 MG, 2X/DAY
     Route: 048
     Dates: start: 20031107
  13. MYCOPHENOLATE MOFETIL [Suspect]
     Dosage: 500 MG, 2X/DAY
     Route: 048
     Dates: start: 20031120
  14. MYCOPHENOLATE MOFETIL [Suspect]
     Dosage: 750 MG, 2X/DAY
     Route: 048
     Dates: start: 20040209
  15. MYCOPHENOLATE MOFETIL [Suspect]
     Dosage: 875 MG, 2X/DAY
     Route: 048
     Dates: start: 20040302
  16. TACROLIMUS [Suspect]
     Indication: PROPHYLAXIS AGAINST TRANSPLANT REJECTION
     Dosage: 4 MG, 2X/DAY
     Route: 048
     Dates: start: 20030424
  17. TACROLIMUS [Suspect]
     Dosage: 1 MG, 2X/DAY
     Route: 048
     Dates: start: 20030428, end: 20040209
  18. AMOXICILLIN [Concomitant]
     Dosage: 750 MG, 2X/DAY
     Route: 048
     Dates: start: 20030305, end: 20030315
  19. CEFOTAXIME [Concomitant]
     Dosage: 1 G, 2X/DAY
     Route: 042
     Dates: start: 20040101, end: 20040116
  20. CEFUROXIME [Concomitant]
     Dosage: 1 MG,2 IN 1 TOTAL
     Route: 042
     Dates: start: 20021204, end: 20021205
  21. CEFUROXIME [Concomitant]
     Dosage: 1.5 MG, 3X/DAY
     Route: 042
     Dates: start: 20031229, end: 20040101
  22. CLINDAMYCIN [Concomitant]
     Dosage: 4 MG,150 IN 1 D
     Route: 048
     Dates: start: 20021125, end: 20030201
  23. DOXYCYCLINE [Concomitant]
     Dosage: 100 MG, 1X/DAY
     Route: 048
     Dates: start: 20030129, end: 20030203
  24. EPOETIN ALFA [Concomitant]
     Dosage: UNK
     Route: 058
     Dates: end: 20021213
  25. EPOETIN ALFA [Concomitant]
     Dosage: 5000 IU, WEEKLY
     Route: 058
     Dates: start: 20030402, end: 20030514
  26. EPOETIN ALFA [Concomitant]
     Dosage: 14000 IU, WEEKLY
     Route: 058
  27. IMIPENEM [Concomitant]
     Dosage: 0.5 G, 2X/DAY
     Route: 042
     Dates: start: 20030924, end: 20031113
  28. INSULIN HUMAN [Concomitant]
     Dosage: 1 ML,10 IN 1 D
     Route: 058
     Dates: start: 20021205, end: 20021206
  29. INSULIN LISPRO [Concomitant]
     Dosage: 49 IU (1 IU,49 IN 1 D)
     Route: 058
     Dates: start: 20021205
  30. INSULIN LISPRO [Concomitant]
     Dosage: 64 IU (1 IU,64 IN 1 D)
     Route: 058
     Dates: start: 20021206, end: 20021208
  31. INSULIN LISPRO [Concomitant]
     Dosage: 30 IU (1 IU,30 IN 1 D)
     Route: 058
     Dates: start: 20021209
  32. INSULIN LISPRO [Concomitant]
     Dosage: 56 IU (1 IU,56 IN 1 D)
     Route: 058
     Dates: start: 20021227
  33. INSULIN LISPRO [Concomitant]
     Dosage: 50 IU (1 IU,50 IN 1 D)
     Route: 058
     Dates: start: 20030217
  34. INSULIN LISPRO [Concomitant]
     Dosage: 48 IU (1 IU,48 IN 1 D)
     Route: 058
     Dates: start: 20030305
  35. INSULIN LISPRO [Concomitant]
     Dosage: 30 IU (30 IU,1 IN 1 D)
     Route: 058
  36. IRBESARTAN [Concomitant]
     Dosage: 75 MG, 1X/DAY
     Route: 048
     Dates: start: 2003
  37. CLOXACILLIN [Concomitant]
     Dosage: 1 G, 3X/DAY
     Route: 042
     Dates: start: 20031205, end: 20031229
  38. LEVOFLOXACIN [Concomitant]
     Dosage: 250 MG, 1X/DAY
     Route: 048
     Dates: start: 20021217, end: 20021222
  39. METOPROLOL SUCCINATE [Concomitant]
     Dosage: 100 MG (1 MG,100 IN 1 D)
     Route: 048
     Dates: start: 20021213, end: 20021227
  40. METOPROLOL SUCCINATE [Concomitant]
     Dosage: 50 MG, 1X/DAY
     Route: 048
     Dates: start: 20030402, end: 20031008
  41. NIFEDIPINE [Concomitant]
     Dosage: 30 MG (1 MG,30 IN 1 D)
     Route: 048
     Dates: start: 20021210, end: 20021213
  42. PIPERACILLIN [Concomitant]
     Dosage: 4 MG, 3X/DAY
     Route: 042
     Dates: start: 20040102, end: 20040116
  43. VALACICLOVIR [Concomitant]
     Dosage: 500 MG, 2X/DAY
     Route: 048
     Dates: start: 20030228, end: 20030315
  44. VALACICLOVIR [Concomitant]
     Dosage: 500 MG, 2X/DAY
     Route: 048
     Dates: start: 20030320, end: 20030402

REACTIONS (6)
  - Peripheral ischaemia [Recovered/Resolved]
  - Pseudomonas infection [Recovered/Resolved]
  - Fluid overload [Recovered/Resolved]
  - Staphylococcal sepsis [Recovered/Resolved]
  - Bacterial sepsis [Recovered/Resolved]
  - Peripheral ischaemia [Recovered/Resolved]
